FAERS Safety Report 15820107 (Version 1)
Quarter: 2019Q1

REPORT INFORMATION
  Report Type: Spontaneous
  Country: PL (occurrence: PL)
  Receive Date: 20190114
  Receipt Date: 20190114
  Transmission Date: 20190417
  Serious: Yes (Hospitalization)
  Sender: FDA-Public Use
  Company Number: PHHY2019PL003217

PATIENT
  Age: 71 Year
  Sex: Male

DRUGS (1)
  1. METFORMIN HYDROCHLORIDE. [Suspect]
     Active Substance: METFORMIN HYDROCHLORIDE
     Indication: TYPE 2 DIABETES MELLITUS
     Dosage: 1700 MG, QD
     Route: 065

REACTIONS (5)
  - Muscular weakness [Unknown]
  - Nodal rhythm [Unknown]
  - Abdominal pain [Unknown]
  - Renal injury [Unknown]
  - Hyperkalaemia [Unknown]
